FAERS Safety Report 9470096 (Version 2)
Quarter: 2013Q4

REPORT INFORMATION
  Report Type: Not Available
  Country: AU (occurrence: AU)
  Receive Date: 20130822
  Receipt Date: 20131004
  Transmission Date: 20140711
  Serious: Yes (Death)
  Sender: FDA-Public Use
  Company Number: AU-ASTELLAS-2013US008862

PATIENT
  Age: 81 Year
  Sex: Male

DRUGS (1)
  1. TARCEVA [Suspect]
     Indication: NON-SMALL CELL LUNG CANCER
     Dosage: 150 MG, UNKNOWN/D
     Route: 048
     Dates: start: 20130615

REACTIONS (2)
  - Rash [Unknown]
  - Death [Fatal]
